FAERS Safety Report 25443403 (Version 1)
Quarter: 2025Q2

REPORT INFORMATION
  Report Type: Spontaneous
  Country: FR (occurrence: FR)
  Receive Date: 20250617
  Receipt Date: 20250617
  Transmission Date: 20250717
  Serious: Yes (Hospitalization, Other)
  Sender: BRISTOL-MYERS SQUIBB COMPANY
  Company Number: None

PATIENT
  Age: 40 Year
  Sex: Female
  Weight: 92 kg

DRUGS (2)
  1. YERVOY [Suspect]
     Active Substance: IPILIMUMAB
     Indication: Metastatic malignant melanoma
     Dosage: 3 COURSES RECEIVED 3MG/KG
     Route: 042
     Dates: start: 20250303, end: 20250414
  2. OPDIVO [Suspect]
     Active Substance: NIVOLUMAB
     Indication: Metastatic malignant melanoma
     Dosage: 3 COURSES RECEIVED 1MG/KG
     Route: 042
     Dates: start: 20250303, end: 20250414

REACTIONS (1)
  - Hepatic cytolysis [Recovering/Resolving]

NARRATIVE: CASE EVENT DATE: 20250504
